FAERS Safety Report 17174298 (Version 9)
Quarter: 2023Q2

REPORT INFORMATION
  Report Type: Report from Study
  Country: JP (occurrence: JP)
  Receive Date: 20191219
  Receipt Date: 20230609
  Transmission Date: 20230721
  Serious: Yes (Life-Threatening, Hospitalization, Other)
  Sender: FDA-Public Use
  Company Number: JP-PFIZER INC-2019521014

PATIENT
  Age: 19 Year
  Sex: Male
  Weight: 61.7 kg

DRUGS (61)
  1. BESPONSA [Suspect]
     Active Substance: INOTUZUMAB OZOGAMICIN
     Indication: Acute lymphocytic leukaemia recurrent
     Dosage: 0.8 MG/M2, 1X/DAY
     Route: 042
     Dates: start: 20190927, end: 20190927
  2. BESPONSA [Suspect]
     Active Substance: INOTUZUMAB OZOGAMICIN
     Dosage: 0.5 MG/M2, 1X/DAY
     Dates: start: 20191004, end: 20191004
  3. BESPONSA [Suspect]
     Active Substance: INOTUZUMAB OZOGAMICIN
     Dosage: 0.5 MG/M2, 1X/DAY
     Dates: start: 20191011, end: 20191011
  4. BESPONSA [Suspect]
     Active Substance: INOTUZUMAB OZOGAMICIN
     Dosage: 0.5 MG/M2, 1X/DAY
     Dates: start: 20191025, end: 20191025
  5. PROGRAF [Suspect]
     Active Substance: TACROLIMUS
     Indication: Prophylaxis against graft versus host disease
     Dosage: UNK
     Route: 042
     Dates: start: 20191119
  6. MELPHALAN [Suspect]
     Active Substance: MELPHALAN
  7. GLYMACKEN [Concomitant]
     Indication: Nervous system disorder prophylaxis
     Dosage: 200 ML, 2X/DAY
     Route: 042
     Dates: start: 20191115, end: 20191115
  8. GLYMACKEN [Concomitant]
     Dosage: 200 ML, 2X/DAY
     Route: 042
     Dates: start: 20191118, end: 20191119
  9. MICAFUNGIN SODIUM [Concomitant]
     Active Substance: MICAFUNGIN SODIUM
     Indication: Prophylaxis
     Dosage: 50 MG, 1X/DAY
     Route: 042
     Dates: start: 20191115, end: 20191126
  10. MICAFUNGIN SODIUM [Concomitant]
     Active Substance: MICAFUNGIN SODIUM
     Dosage: 150 MG, 1X/DAY
     Dates: start: 20191127, end: 20191129
  11. GRANISETRON [Concomitant]
     Active Substance: GRANISETRON
     Indication: Medical procedure
     Dosage: 3 MG, 2X/DAY
     Route: 042
     Dates: start: 20191115, end: 20191118
  12. GRANISETRON [Concomitant]
     Active Substance: GRANISETRON
     Indication: Antiemetic supportive care
  13. ALOXI [Concomitant]
     Active Substance: PALONOSETRON HYDROCHLORIDE
     Indication: Medical procedure
     Dosage: 0.75 MG, 1X/DAY
     Route: 042
     Dates: start: 20191119, end: 20191119
  14. ALOXI [Concomitant]
     Active Substance: PALONOSETRON HYDROCHLORIDE
     Indication: Antiemetic supportive care
  15. ATARAX-P [HYDROXYZINE HYDROCHLORIDE] [Concomitant]
     Indication: Medical procedure
     Dosage: 50 MG, 1X/DAY
     Route: 042
     Dates: start: 20191120
  16. HAPTOGLOBIN [Concomitant]
     Indication: Medical procedure
     Dosage: 4000 IU, 1X/DAY
     Route: 042
     Dates: start: 20191120, end: 20191120
  17. ORGARAN [Concomitant]
     Active Substance: DANAPAROID SODIUM
     Indication: Vascular disorder prophylaxis
     Dosage: 1250 IU, 2X/DAY
     Route: 042
     Dates: start: 20191115
  18. DEXAMETHASONE SODIUM PHOSPHATE [Concomitant]
     Active Substance: DEXAMETHASONE SODIUM PHOSPHATE
     Indication: Nervous system disorder prophylaxis
     Dosage: 3.3 MG, 2X/DAY
     Route: 042
     Dates: start: 20191115, end: 20191115
  19. DEXAMETHASONE SODIUM PHOSPHATE [Concomitant]
     Active Substance: DEXAMETHASONE SODIUM PHOSPHATE
     Dosage: 3.3 MG, 2X/DAY
     Route: 042
     Dates: start: 20191118, end: 20191119
  20. ALKERAN [Concomitant]
     Active Substance: MELPHALAN
     Indication: Medical procedure
     Dosage: 195 MG, 1X/DAY
     Route: 042
     Dates: start: 20191117, end: 20191117
  21. LASIX [Concomitant]
     Active Substance: FUROSEMIDE
     Indication: Polyuria
     Dosage: 20 MG, 2X/DAY
     Route: 042
     Dates: start: 20191117
  22. CEFEPIME [Concomitant]
     Active Substance: CEFEPIME HYDROCHLORIDE
     Indication: Febrile neutropenia
     Dosage: 2 G, 2X/DAY
     Route: 042
     Dates: start: 20191121, end: 20191125
  23. MEROPENEM [Concomitant]
     Active Substance: MEROPENEM
     Indication: Febrile neutropenia
     Dosage: 1 G, 3X/DAY
     Route: 042
     Dates: start: 20191125
  24. FILGRASTIM [Concomitant]
     Active Substance: FILGRASTIM
     Indication: Medical procedure
     Dosage: 525 MG, 1X/DAY
     Route: 042
     Dates: start: 20191125
  25. VANCOMYCIN [Concomitant]
     Active Substance: VANCOMYCIN
     Indication: Febrile neutropenia
     Dosage: 1000 MG
     Route: 042
     Dates: start: 20191127, end: 20191129
  26. LEUCOVORIN [Concomitant]
     Active Substance: LEUCOVORIN
     Indication: Prophylaxis
     Dosage: 20 MG, 3X/DAY
     Route: 042
     Dates: start: 20191121, end: 20191121
  27. LEUCOVORIN [Concomitant]
     Active Substance: LEUCOVORIN
     Dosage: 17.5 MG, 3X/DAY
     Route: 017
     Dates: start: 20191123, end: 20191123
  28. LEUCOVORIN [Concomitant]
     Active Substance: LEUCOVORIN
     Dosage: 17.5 MG, 3X/DAY
     Route: 017
     Dates: start: 20191126, end: 20191126
  29. OMEPRAZOLE [Concomitant]
     Active Substance: OMEPRAZOLE
     Indication: Gastric ulcer
     Dosage: 20 MG, 2X/DAY
     Route: 042
     Dates: start: 20191123
  30. METHOTREXATE [Concomitant]
     Active Substance: METHOTREXATE
     Indication: Prophylaxis against graft versus host disease
     Dosage: 20 1X/DAY
     Route: 042
     Dates: start: 20191121, end: 20191121
  31. METHOTREXATE [Concomitant]
     Active Substance: METHOTREXATE
     Dosage: UNK UNK, 1X/DAY (17.5)
     Route: 042
     Dates: start: 20191123, end: 20191123
  32. METHOTREXATE [Concomitant]
     Active Substance: METHOTREXATE
     Dosage: UNK, 1X/DAY (17.5)
     Route: 042
     Dates: start: 20191126, end: 20191126
  33. FENTANYL [Concomitant]
     Active Substance: FENTANYL
     Indication: Pain
     Dosage: UNK
     Route: 042
     Dates: start: 20191128
  34. MAGNESIUM SULFATE [Concomitant]
     Active Substance: MAGNESIUM SULFATE
     Indication: Hypomagnesaemia
     Dosage: 20 ML, 1X/DAY
     Route: 042
     Dates: start: 20191128, end: 20191130
  35. FLURBIPROFEN AXETIL [Concomitant]
     Active Substance: FLURBIPROFEN AXETIL
     Indication: Pain
     Dosage: 50 MG, 3X/DAY
     Route: 042
     Dates: start: 20191129, end: 20191130
  36. CUBICIN [Concomitant]
     Active Substance: DAPTOMYCIN
     Indication: Febrile neutropenia
     Dosage: 350 MG, 1X/DAY
     Route: 042
     Dates: start: 20191129
  37. VFEND [Concomitant]
     Active Substance: VORICONAZOLE
     Indication: Febrile neutropenia
     Dosage: 370 MG, 2X/DAY
     Route: 042
     Dates: start: 20191130
  38. VFEND [Concomitant]
     Active Substance: VORICONAZOLE
     Dosage: 180 MG, 2X/DAY
     Route: 042
     Dates: start: 20191201
  39. NONTHRON [Concomitant]
     Indication: Antithrombin III decreased
     Dosage: 1500 IU, 1X/DAY
     Route: 042
     Dates: start: 20191201
  40. THROMBOMODULIN ALFA [Concomitant]
     Active Substance: THROMBOMODULIN ALFA
     Indication: Disseminated intravascular coagulation
     Dosage: 7800 IU, 1X/DAY
     Route: 042
     Dates: start: 20191201, end: 20191201
  41. ALBUMIN HUMAN [Concomitant]
     Active Substance: ALBUMIN HUMAN
     Indication: Hypoalbuminaemia
     Dosage: 250 MG, 1X/DAY
     Route: 042
     Dates: start: 20191201, end: 20191201
  42. ACETAMINOPHEN [Concomitant]
     Active Substance: ACETAMINOPHEN
     Indication: Pyrexia
     Dosage: 500 MG, 2X/DAY
     Route: 042
     Dates: start: 20191201
  43. AMINO ACIDS\DEXTROSE\ELECTROLYTES NOS\MINERALS\VITAMINS [Concomitant]
     Active Substance: AMINO ACIDS\DEXTROSE\ELECTROLYTES NOS\MINERALS\VITAMINS
     Indication: Decreased appetite
     Dosage: UNK
     Route: 042
     Dates: start: 20191121, end: 20191124
  44. AMINO ACIDS\DEXTROSE\ELECTROLYTES NOS\MINERALS\VITAMINS [Concomitant]
     Active Substance: AMINO ACIDS\DEXTROSE\ELECTROLYTES NOS\MINERALS\VITAMINS
     Dosage: UNK
     Dates: start: 20191125, end: 20191201
  45. ACYCLOVIR [Concomitant]
     Active Substance: ACYCLOVIR
     Indication: Antiviral prophylaxis
     Dosage: 250 MG, 3X/DAY
     Route: 042
     Dates: start: 20191122
  46. LOXOPROFEN [Concomitant]
     Active Substance: LOXOPROFEN
     Indication: Pain
     Dosage: 60 MG, 3X/DAY
     Route: 048
     Dates: start: 20191123, end: 20191127
  47. CARBOCYSTEINE [Concomitant]
     Active Substance: CARBOCYSTEINE
     Indication: Sinusitis
     Dosage: 500 MG, 3X/DAY
     Route: 048
     Dates: start: 20191107, end: 20191122
  48. LANSOPRAZOLE [Concomitant]
     Active Substance: LANSOPRAZOLE
     Indication: Prophylaxis against gastrointestinal ulcer
     Dosage: 15 MG, 1X/DAY
     Route: 048
     Dates: end: 20191122
  49. MAGNESIUM OXIDE [Concomitant]
     Active Substance: MAGNESIUM OXIDE
     Indication: Constipation
     Dosage: 990 MG, 3X/DAY
     Route: 048
     Dates: end: 20191122
  50. SENNOSIDES [Concomitant]
     Active Substance: SENNOSIDES
     Indication: Constipation
     Dosage: 48 MG, 1X/DAY
     Route: 048
     Dates: end: 20191121
  51. AMITIZA [Concomitant]
     Active Substance: LUBIPROSTONE
     Indication: Constipation
     Dosage: 24 MG, 2X/DAY
     Route: 048
     Dates: end: 20191121
  52. URSODIOL [Concomitant]
     Active Substance: URSODIOL
     Indication: Hepatic enzyme increased
     Dosage: 300 MG, 3X/DAY
     Route: 048
  53. AMINO ACIDS\CARBOHYDRATES\MINERALS\SOYBEAN OIL\VITAMINS [Concomitant]
     Active Substance: AMINO ACIDS\CARBOHYDRATES\MINERALS\SOYBEAN OIL\VITAMINS
     Indication: Decreased appetite
     Dosage: 1 DF, 1X/DAY
     Route: 048
     Dates: start: 20191114
  54. FEBUXOSTAT [Concomitant]
     Active Substance: FEBUXOSTAT
     Indication: Hyperuricaemia
     Dosage: 20 MG, 1X/DAY
     Route: 048
     Dates: start: 20191115, end: 20191119
  55. LACTULOSE [Concomitant]
     Active Substance: LACTULOSE
     Indication: Constipation
     Dosage: 20 ML, 3X/DAY
     Route: 048
     Dates: end: 20191121
  56. OLOPATADINE [Concomitant]
     Active Substance: OLOPATADINE
     Indication: Sinusitis
     Dosage: 5 MG, 2X/DAY
     Route: 048
     Dates: start: 20191112, end: 20191119
  57. CLARITHROMYCIN [Concomitant]
     Active Substance: CLARITHROMYCIN
     Indication: Sinusitis
     Dosage: 200 MG, 2X/DAY
     Route: 048
     Dates: start: 20191107, end: 20191121
  58. HERBALS [Concomitant]
     Active Substance: HERBALS
     Indication: Stomatitis
     Dosage: 2.5 G, 3X/DAY
     Route: 048
     Dates: start: 20191115
  59. LEVOFLOXACIN [Concomitant]
     Active Substance: LEVOFLOXACIN
     Indication: Febrile neutropenia
     Dosage: 500 MG, 1X/DAY
     Route: 048
     Dates: start: 20191115, end: 20191121
  60. ACYCLOVIR [Concomitant]
     Active Substance: ACYCLOVIR
     Indication: Febrile neutropenia
     Dosage: 200 MG, UNK
     Route: 048
     Dates: end: 20191122
  61. PREVYMIS [Concomitant]
     Active Substance: LETERMOVIR
     Indication: Antiviral prophylaxis
     Dosage: 480 MG, 1X/DAY
     Route: 048
     Dates: start: 20191120

REACTIONS (5)
  - Engraftment syndrome [Recovered/Resolved]
  - Venoocclusive liver disease [Recovered/Resolved]
  - Acute kidney injury [Recovering/Resolving]
  - Platelet count decreased [Recovered/Resolved]
  - Immune system disorder [Recovering/Resolving]

NARRATIVE: CASE EVENT DATE: 20191030
